FAERS Safety Report 20861967 (Version 1)
Quarter: 2022Q2

REPORT INFORMATION
  Report Type: Other
  Country: None (occurrence: CA)
  Receive Date: 20220523
  Receipt Date: 20220523
  Transmission Date: 20220721
  Serious: Yes (Other)
  Sender: FDA-Public Use
  Company Number: CA-Stason Pharmaceuticals, Inc.-2129056

PATIENT
  Age: 30 Year
  Sex: Female

DRUGS (2)
  1. MERCAPTOPURINE [Suspect]
     Active Substance: MERCAPTOPURINE
     Indication: Acute lymphocytic leukaemia
     Route: 065
  2. THIOGUANINE [Concomitant]
     Active Substance: THIOGUANINE
     Route: 065

REACTIONS (1)
  - Factor V deficiency [Unknown]
